FAERS Safety Report 13424339 (Version 1)
Quarter: 2017Q2

REPORT INFORMATION
  Report Type: Spontaneous
  Country: US (occurrence: US)
  Receive Date: 20170410
  Receipt Date: 20170410
  Transmission Date: 20170830
  Serious: Yes (Other)
  Sender: FDA-Public Use
  Company Number: US-BAYER-2017-060447

PATIENT
  Age: 16 Year
  Sex: Female
  Weight: 66.98 kg

DRUGS (2)
  1. ALKA-SELTZER PLUS COLD SPARKLING ORIGINAL [Suspect]
     Active Substance: ASPIRIN\CHLORPHENIRAMINE MALEATE\PHENYLEPHRINE BITARTRATE
     Indication: VIRAL UPPER RESPIRATORY TRACT INFECTION
  2. ALKA-SELTZER PLUS COLD SPARKLING ORIGINAL [Suspect]
     Active Substance: ASPIRIN\CHLORPHENIRAMINE MALEATE\PHENYLEPHRINE BITARTRATE
     Indication: HYPERSENSITIVITY
     Dosage: 2 DF, BID
     Route: 048
     Dates: start: 20170328, end: 20170328

REACTIONS (2)
  - Vaginal haemorrhage [Recovered/Resolved]
  - Maternal exposure during pregnancy [Unknown]

NARRATIVE: CASE EVENT DATE: 20170328
